FAERS Safety Report 20444255 (Version 1)
Quarter: 2022Q1

REPORT INFORMATION
  Report Type: Spontaneous
  Country: US (occurrence: None)
  Receive Date: 20220208
  Receipt Date: 20220208
  Transmission Date: 20220423
  Serious: Yes (Hospitalization)
  Sender: FDA-Public Use
  Company Number: 2022A055328

PATIENT
  Age: 825 Month
  Sex: Male
  Weight: 117.9 kg

DRUGS (3)
  1. LYNPARZA [Interacting]
     Active Substance: OLAPARIB
     Indication: Prostate cancer
     Route: 048
     Dates: start: 202109
  2. LUPRON [Interacting]
     Active Substance: LEUPROLIDE ACETATE
     Dosage: EVERY 3 MONTHS
     Route: 065
  3. CHORIOGONADOTROPIN ALFA [Interacting]
     Active Substance: CHORIOGONADOTROPIN ALFA
     Dosage: EVERY 3 MONTHS
     Route: 065

REACTIONS (8)
  - Drug interaction [Unknown]
  - Peripheral swelling [Unknown]
  - Thrombosis [Unknown]
  - Haematocrit decreased [Unknown]
  - Herpes zoster [Unknown]
  - Decreased activity [Unknown]
  - Pain [Unknown]
  - Fatigue [Unknown]

NARRATIVE: CASE EVENT DATE: 20210901
